FAERS Safety Report 9881668 (Version 1)
Quarter: 2014Q1

REPORT INFORMATION
  Report Type: Other
  Country: GB (occurrence: GB)
  Receive Date: 20140207
  Receipt Date: 20140207
  Transmission Date: 20141002
  Serious: Yes (Hospitalization)
  Sender: FDA-Public Use
  Company Number: GB-PERRIGO-14GB000970

PATIENT
  Age: 72 Year
  Sex: Male
  Weight: 70.4 kg

DRUGS (3)
  1. DEXAMETHASONE/ ROSEMONT 0.4MG/ML 54713 [Suspect]
     Indication: PLASMA CELL MYELOMA
     Dosage: UNK
     Route: 048
     Dates: start: 20130716, end: 20131126
  2. REVLIMID [Suspect]
     Indication: PLASMA CELL MYELOMA
     Dosage: 10 MG, UNK
     Route: 048
     Dates: start: 20130716, end: 20131125
  3. PLACEBO [Suspect]
     Indication: PLASMA CELL MYELOMA
     Dosage: 4 MG, UNK
     Route: 048
     Dates: start: 20130716, end: 20131119

REACTIONS (1)
  - Plasmacytoma [Recovering/Resolving]
